FAERS Safety Report 19749456 (Version 1)
Quarter: 2021Q3

REPORT INFORMATION
  Report Type: Report from Study
  Country: ZA (occurrence: ZA)
  Receive Date: 20210826
  Receipt Date: 20210826
  Transmission Date: 20211014
  Serious: Yes (Other)
  Sender: FDA-Public Use
  Company Number: NVSC2021ZA188512

PATIENT
  Age: 42 Year
  Sex: Female

DRUGS (1)
  1. TUVIGIN [Suspect]
     Active Substance: FINGOLIMOD HYDROCHLORIDE
     Indication: RELAPSING-REMITTING MULTIPLE SCLEROSIS
     Dosage: 0.5 MG, QD
     Route: 048
     Dates: start: 20200318

REACTIONS (3)
  - Multiple sclerosis relapse [Unknown]
  - COVID-19 [Recovered/Resolved with Sequelae]
  - Multiple sclerosis [Unknown]

NARRATIVE: CASE EVENT DATE: 20210626
